FAERS Safety Report 8783196 (Version 1)
Quarter: 2012Q4

REPORT INFORMATION
  Report Type: 
  Country: US (occurrence: US)
  Receive Date: 20120913
  Receipt Date: 20120913
  Transmission Date: 20130627
  Serious: No
  Sender: FDA-Public Use
  Company Number: US-VERTEX PHARMACEUTICAL INC.-AE-2012-009634

PATIENT
  Sex: Male

DRUGS (6)
  1. INCIVEK [Suspect]
     Indication: HEPATITIS C
     Route: 048
     Dates: start: 201110
  2. INCIVEK [Suspect]
     Route: 048
     Dates: start: 20120614
  3. PEGASYS [Concomitant]
     Indication: HEPATITIS C
     Route: 058
     Dates: start: 201110
  4. PEGASYS [Concomitant]
     Route: 058
     Dates: start: 20120614
  5. RIBAVIRIN [Concomitant]
     Indication: HEPATITIS C
     Route: 048
     Dates: start: 201110
  6. RIBAVIRIN [Concomitant]
     Route: 048
     Dates: start: 20120614

REACTIONS (1)
  - Red blood cell count decreased [Unknown]
